FAERS Safety Report 6366529-4 (Version None)
Quarter: 2009Q3

REPORT INFORMATION
  Report Type: 
  Country: None (occurrence: None)
  Receive Date: 20090921
  Receipt Date: 20090910
  Transmission Date: 20100115
  Serious: Yes (Other)
  Sender: FDA-Public Use
  Company Number: CA-ASTRAZENECA-2009SE12883

PATIENT
  Age: 60 Year
  Sex: Male

DRUGS (7)
  1. NEXIUM [Suspect]
     Indication: REFLUX OESOPHAGITIS
     Route: 048
  2. PRILOSEC [Suspect]
     Indication: REFLUX OESOPHAGITIS
     Route: 048
  3. ZANTAC [Concomitant]
     Indication: REFLUX OESOPHAGITIS
     Route: 048
  4. PREVACID [Concomitant]
     Indication: REFLUX OESOPHAGITIS
  5. DOMPERIDONE [Concomitant]
     Indication: IRRITABLE BOWEL SYNDROME
     Route: 048
  6. ALTACE [Concomitant]
     Indication: HYPERTENSION
  7. BISOPROLOL [Concomitant]
     Indication: HYPERTENSION

REACTIONS (6)
  - CHRONIC FATIGUE SYNDROME [None]
  - DRUG EFFECT DECREASED [None]
  - DRY MOUTH [None]
  - IRRITABLE BOWEL SYNDROME [None]
  - MEDICATION RESIDUE [None]
  - MYASTHENIA GRAVIS [None]
